FAERS Safety Report 24409209 (Version 2)
Quarter: 2024Q4

REPORT INFORMATION
  Report Type: Spontaneous
  Country: AR (occurrence: AR)
  Receive Date: 20241008
  Receipt Date: 20241220
  Transmission Date: 20250114
  Serious: Yes (Other)
  Sender: NOVO NORDISK
  Company Number: AR-NOVOPROD-1293880

PATIENT
  Age: 42 Year
  Sex: Female
  Weight: 87.3 kg

DRUGS (4)
  1. SAXENDA [Suspect]
     Active Substance: LIRAGLUTIDE
     Dosage: IS TITRATING UP MORE SLOWLY
     Route: 058
  2. SAXENDA [Suspect]
     Active Substance: LIRAGLUTIDE
     Indication: Obesity
     Dosage: UNK
     Route: 058
     Dates: start: 20240826
  3. SAXENDA [Suspect]
     Active Substance: LIRAGLUTIDE
     Dosage: 1.2; UNIT NOT REPORTED, QD
     Route: 058
     Dates: start: 20240830
  4. BISOPROLOL [Concomitant]
     Active Substance: BISOPROLOL
     Indication: Arrhythmia
     Dosage: 2.5 DOSAGE UNIT NOT REPORTED. START DATE: MORE THAN 2 YEARS AGO

REACTIONS (3)
  - Retinal haemorrhage [Recovering/Resolving]
  - Capillary fragility [Recovering/Resolving]
  - Drug intolerance [Recovering/Resolving]

NARRATIVE: CASE EVENT DATE: 20240922
